FAERS Safety Report 6532885-7 (Version None)
Quarter: 2010Q1

REPORT INFORMATION
  Report Type: 
  Country: None (occurrence: None)
  Receive Date: 20100111
  Receipt Date: 20100105
  Transmission Date: 20100710
  Serious: Yes (Death)
  Sender: FDA-Public Use
  Company Number: JP-SANOFI-AVENTIS-200911992JP

PATIENT
  Age: 77 Year
  Sex: Male

DRUGS (3)
  1. LANTUS [Suspect]
     Dosage: DOSE:10 UNIT(S)
     Route: 058
     Dates: start: 20081121
  2. SOLOSTAR [Suspect]
     Dates: start: 20081121
  3. INSULIN ASPART [Concomitant]
     Route: 058
     Dates: start: 20070202

REACTIONS (1)
  - ASPIRATION [None]
